FAERS Safety Report 15652653 (Version 1)
Quarter: 2018Q4

REPORT INFORMATION
  Report Type: Spontaneous
  Country: US (occurrence: US)
  Receive Date: 20181123
  Receipt Date: 20181123
  Transmission Date: 20190205
  Serious: No
  Sender: FDA-Public Use
  Company Number: US-NOVOPROD-578237

PATIENT
  Age: 47 Year
  Sex: Male
  Weight: 104.31 kg

DRUGS (3)
  1. NOVOLOG [Suspect]
     Active Substance: INSULIN ASPART
     Dosage: 30.27 U BOLUS
     Route: 058
     Dates: start: 20171216, end: 20171216
  2. NOVOLOG [Suspect]
     Active Substance: INSULIN ASPART
     Dosage: SLIDING SCALE (LESS THAN 100 UNITS PER DAY)
     Route: 058
     Dates: start: 20171213, end: 20171214
  3. NOVOLOG [Suspect]
     Active Substance: INSULIN ASPART
     Indication: TYPE 2 DIABETES MELLITUS
     Dosage: SLIDING SCALE (120-130 UNITS PER DAY)
     Route: 058
     Dates: start: 1998

REACTIONS (6)
  - Migraine [Recovering/Resolving]
  - Eye pain [Not Recovered/Not Resolved]
  - Product quality issue [Recovered/Resolved]
  - Blood glucose decreased [Recovered/Resolved]
  - Drug effect increased [Recovered/Resolved]
  - Blood glucose increased [Recovered/Resolved]

NARRATIVE: CASE EVENT DATE: 20171212
